FAERS Safety Report 24220852 (Version 1)
Quarter: 2024Q3

REPORT INFORMATION
  Report Type: Spontaneous
  Country: US (occurrence: US)
  Receive Date: 20240818
  Receipt Date: 20240818
  Transmission Date: 20241017
  Serious: No
  Sender: ROCHE
  Company Number: US-ROCHE-10000057920

PATIENT
  Sex: Female

DRUGS (2)
  1. ACTEMRA [Suspect]
     Active Substance: TOCILIZUMAB
     Indication: Giant cell arteritis
     Dosage: STRENGHT: 162 PER 0.9 M
     Route: 058
     Dates: start: 20240606
  2. ACTEMRA [Suspect]
     Active Substance: TOCILIZUMAB
     Indication: Polymyalgia rheumatica

REACTIONS (6)
  - Pain [Unknown]
  - Nausea [Unknown]
  - Vomiting [Unknown]
  - Ear swelling [Unknown]
  - Muscle spasms [Unknown]
  - Headache [Unknown]
